FAERS Safety Report 9804901 (Version 16)
Quarter: 2014Q4

REPORT INFORMATION
  Report Type: Spontaneous
  Country: CA (occurrence: CA)
  Receive Date: 20140108
  Receipt Date: 20141010
  Transmission Date: 20150529
  Serious: Yes (Hospitalization, Other)
  Sender: FDA-Public Use
  Company Number: CA-ROCHE-1330025

PATIENT
  Age: 45 Year
  Sex: Male
  Weight: 87 kg

DRUGS (26)
  1. XOLAIR [Suspect]
     Active Substance: OMALIZUMAB
     Route: 058
     Dates: start: 20140311
  2. XOLAIR [Suspect]
     Active Substance: OMALIZUMAB
     Route: 058
     Dates: start: 20131118
  3. XOLAIR [Suspect]
     Active Substance: OMALIZUMAB
     Route: 058
     Dates: start: 20130729
  4. XOLAIR [Suspect]
     Active Substance: OMALIZUMAB
     Route: 058
     Dates: start: 20130812
  5. VIOMYCIN SULFATE [Concomitant]
     Active Substance: VIOMYCIN SULFATE
  6. SINGULAIR [Concomitant]
     Active Substance: MONTELUKAST SODIUM
  7. XOLAIR [Suspect]
     Active Substance: OMALIZUMAB
     Indication: ASTHMA
     Route: 058
     Dates: start: 20130617
  8. XOLAIR [Suspect]
     Active Substance: OMALIZUMAB
     Route: 058
     Dates: start: 20140422
  9. XOLAIR [Suspect]
     Active Substance: OMALIZUMAB
     Route: 058
     Dates: start: 20140506
  10. VENTOLIN [Concomitant]
     Active Substance: ALBUTEROL SULFATE
  11. SYMBICORT [Concomitant]
     Active Substance: BUDESONIDE\FORMOTEROL FUMARATE DIHYDRATE
  12. LYRICA [Concomitant]
     Active Substance: PREGABALIN
  13. XOLAIR [Suspect]
     Active Substance: OMALIZUMAB
     Route: 058
     Dates: start: 20140407
  14. XOLAIR [Suspect]
     Active Substance: OMALIZUMAB
     Route: 058
     Dates: start: 20140908
  15. PULMICORT TURBUHALER [Concomitant]
     Active Substance: BUDESONIDE
  16. THEOPHYLLINE [Concomitant]
     Active Substance: THEOPHYLLINE ANHYDROUS
  17. XOLAIR [Suspect]
     Active Substance: OMALIZUMAB
     Route: 058
     Dates: start: 20140520
  18. CETRIZINE [Concomitant]
     Active Substance: CETIRIZINE HYDROCHLORIDE
  19. XOLAIR [Suspect]
     Active Substance: OMALIZUMAB
     Route: 058
     Dates: start: 20130702
  20. XOLAIR [Suspect]
     Active Substance: OMALIZUMAB
     Route: 058
     Dates: start: 20131230
  21. XOLAIR [Suspect]
     Active Substance: OMALIZUMAB
     Route: 058
     Dates: start: 20140211
  22. XOLAIR [Suspect]
     Active Substance: OMALIZUMAB
     Route: 058
     Dates: start: 20140325
  23. UNIPHYL [Concomitant]
     Active Substance: THEOPHYLLINE ANHYDROUS
  24. CYMBALTA [Concomitant]
     Active Substance: DULOXETINE HYDROCHLORIDE
  25. SPIRIVA [Concomitant]
     Active Substance: TIOTROPIUM BROMIDE MONOHYDRATE
  26. ZENHALE [Concomitant]
     Active Substance: FORMOTEROL FUMARATE\MOMETASONE FUROATE

REACTIONS (14)
  - Pneumonia [Recovering/Resolving]
  - Crepitations [Unknown]
  - Sputum discoloured [Unknown]
  - Asthma [Unknown]
  - Seasonal allergy [Unknown]
  - Bronchitis [Recovering/Resolving]
  - Wheezing [Unknown]
  - Dyspnoea [Unknown]
  - Respiratory disorder [Unknown]
  - Respiratory tract congestion [Unknown]
  - Weight increased [Recovering/Resolving]
  - Productive cough [Unknown]
  - Rhonchi [Unknown]
  - Malaise [Unknown]

NARRATIVE: CASE EVENT DATE: 20130703
